FAERS Safety Report 9922696 (Version 1)
Quarter: 2014Q1

REPORT INFORMATION
  Report Type: Spontaneous
  Country: US (occurrence: US)
  Receive Date: 20140225
  Receipt Date: 20140225
  Transmission Date: 20141002
  Serious: No
  Sender: FDA-Public Use
  Company Number: US-MYLANLABS-2013S1015309

PATIENT
  Age: 76 Year
  Sex: Male
  Weight: 78.47 kg

DRUGS (7)
  1. METOPROLOL TARTRATE TABLETS, USP [Suspect]
     Indication: BLOOD PRESSURE INCREASED
     Route: 048
     Dates: start: 201211
  2. AMIODARONE (UPSHER SMITH) [Suspect]
     Indication: ARRHYTHMIA
     Route: 048
     Dates: start: 201211, end: 20130703
  3. OMEPRAZOLE [Concomitant]
     Indication: GASTROOESOPHAGEAL REFLUX DISEASE
     Route: 048
  4. ASA [Concomitant]
     Route: 048
     Dates: start: 201211
  5. ROSUVASTATIN [Concomitant]
     Indication: BLOOD CHOLESTEROL INCREASED
     Route: 048
  6. VALIUM [Concomitant]
     Indication: ANXIETY
     Route: 048
  7. FISH OIL [Concomitant]
     Route: 048

REACTIONS (2)
  - Asthenia [Not Recovered/Not Resolved]
  - Insomnia [Not Recovered/Not Resolved]
